FAERS Safety Report 19370357 (Version 2)
Quarter: 2021Q4

REPORT INFORMATION
  Report Type: Spontaneous
  Country: US (occurrence: US)
  Receive Date: 20210603
  Receipt Date: 20211206
  Transmission Date: 20220303
  Serious: Yes (Other)
  Sender: FDA-Public Use
  Company Number: US-GILEAD-2021-0534092

PATIENT
  Age: 53 Year
  Sex: Male
  Weight: 85.714 kg

DRUGS (89)
  1. TRUVADA [Suspect]
     Active Substance: EMTRICITABINE\TENOFOVIR DISOPROXIL FUMARATE
     Indication: HIV infection
     Dosage: UNK
     Route: 048
     Dates: start: 2012
  2. TRUVADA [Suspect]
     Active Substance: EMTRICITABINE\TENOFOVIR DISOPROXIL FUMARATE
     Dosage: UNK
     Route: 048
     Dates: start: 200803, end: 201606
  3. DESCOVY [Concomitant]
     Active Substance: EMTRICITABINE\TENOFOVIR ALAFENAMIDE FUMARATE
  4. NORVIR [Concomitant]
     Active Substance: RITONAVIR
  5. PREZISTA [Concomitant]
     Active Substance: DARUNAVIR ETHANOLATE
  6. SYMTUZA [Concomitant]
     Active Substance: COBICISTAT\DARUNAVIR\EMTRICITABINE\TENOFOVIR ALAFENAMIDE
  7. TIVICAY [Concomitant]
     Active Substance: DOLUTEGRAVIR SODIUM
  8. ACETAMINOPHEN [Concomitant]
     Active Substance: ACETAMINOPHEN
  9. ADAPALENE [Concomitant]
     Active Substance: ADAPALENE
  10. AMOXICILLIN [Concomitant]
     Active Substance: AMOXICILLIN
  11. AZELASTINE [Concomitant]
     Active Substance: AZELASTINE
  12. AZITHROMYCIN [Concomitant]
     Active Substance: AZITHROMYCIN
  13. BECONASE AQ [Concomitant]
     Active Substance: BECLOMETHASONE DIPROPIONATE MONOHYDRATE
  14. BENZONATATE [Concomitant]
     Active Substance: BENZONATATE
  15. BETAMETHASONE [Concomitant]
     Active Substance: BETAMETHASONE
  16. BUDESONIDE [Concomitant]
     Active Substance: BUDESONIDE
  17. CEFDINIR [Concomitant]
     Active Substance: CEFDINIR
  18. CEPHALEXIN [Concomitant]
     Active Substance: CEPHALEXIN
  19. CETIRIZINE [Concomitant]
     Active Substance: CETIRIZINE HYDROCHLORIDE
  20. CHLORHEXIDINE [Concomitant]
     Active Substance: CHLORHEXIDINE
  21. CIPROFLOXACIN [Concomitant]
     Active Substance: CIPROFLOXACIN
  22. CLINDAMYCIN [Concomitant]
     Active Substance: CLINDAMYCIN
  23. CLOPIDOGREL [Concomitant]
     Active Substance: CLOPIDOGREL BISULFATE
  24. COLY-MYCIN [Concomitant]
  25. COLY-MYCIN S [Concomitant]
     Active Substance: COLISTIN SULFATE\HYDROCORTISONE ACETATE\NEOMYCIN SULFATE\THONZONIUM BROMIDE
  26. CRESTOR [Concomitant]
     Active Substance: ROSUVASTATIN CALCIUM
  27. CYCLOBENZAPRINE [Concomitant]
     Active Substance: CYCLOBENZAPRINE
  28. DERMA-SMOOTHE/FS [Concomitant]
     Active Substance: FLUOCINOLONE ACETONIDE
  29. DESONIDE [Concomitant]
     Active Substance: DESONIDE
  30. DIAZEPAM [Concomitant]
     Active Substance: DIAZEPAM
  31. DICYCLOMINE [Concomitant]
     Active Substance: DICYCLOMINE HYDROCHLORIDE
  32. EPIDUO [Concomitant]
     Active Substance: ADAPALENE\BENZOYL PEROXIDE
  33. FAMOTIDINE [Concomitant]
     Active Substance: FAMOTIDINE
  34. FINASTERIDE [Concomitant]
     Active Substance: FINASTERIDE
  35. FLORASTOR [LACTOBACILLUS ACIDOPHILUS] [Concomitant]
  36. FLUARIX NOS [Concomitant]
     Active Substance: INFLUENZA VIRUS VACCINE
  37. FLUTICASONE [Concomitant]
     Active Substance: FLUTICASONE
  38. FLUCONAZOLE [Concomitant]
     Active Substance: FLUCONAZOLE
  39. FUROSEMIDE [Concomitant]
     Active Substance: FUROSEMIDE
  40. GAVILYTE - C [Concomitant]
     Active Substance: POLYETHYLENE GLYCOL 3350\POTASSIUM CHLORIDE\SODIUM BICARBONATE\SODIUM CHLORIDE\SODIUM SULFATE
  41. GAVILYTE G [Concomitant]
     Active Substance: POLYETHYLENE GLYCOL 3350\POTASSIUM CHLORIDE\SODIUM BICARBONATE\SODIUM CHLORIDE\SODIUM SULFATE
  42. HYDROCODONE [Concomitant]
     Active Substance: HYDROCODONE
  43. IBUPROFEN [Concomitant]
     Active Substance: IBUPROFEN
  44. INDOMETHACIN [Concomitant]
     Active Substance: INDOMETHACIN
  45. IPRATROPIUM [Concomitant]
     Active Substance: IPRATROPIUM
  46. ISENTRESS [Concomitant]
     Active Substance: RALTEGRAVIR POTASSIUM
  47. ISOSORBIDE [Concomitant]
     Active Substance: ISOSORBIDE
  48. ISOSORBIDE MONONITRATE [Concomitant]
     Active Substance: ISOSORBIDE MONONITRATE
  49. KETOCONAZOLE [Concomitant]
     Active Substance: KETOCONAZOLE
  50. KETOROLAC [Concomitant]
     Active Substance: KETOROLAC TROMETHAMINE
  51. LEVAQUIN [Concomitant]
     Active Substance: LEVOFLOXACIN
  52. LIPITOR [Concomitant]
     Active Substance: ATORVASTATIN CALCIUM
  53. LISINOPRIL [Concomitant]
     Active Substance: LISINOPRIL
  54. LOSARTAN [Concomitant]
     Active Substance: LOSARTAN
  55. LOSARTAN POTASSIUM [Concomitant]
     Active Substance: LOSARTAN POTASSIUM
  56. METOPROLOL SUCCINATE [Concomitant]
     Active Substance: METOPROLOL SUCCINATE
  57. METRONIDAZOLE [Concomitant]
     Active Substance: METRONIDAZOLE
  58. MICROLET [ETHINYLESTRADIOL;GESTODENE] [Concomitant]
  59. MONTELUKAST [Concomitant]
     Active Substance: MONTELUKAST SODIUM
  60. NAPROXEN [Concomitant]
     Active Substance: NAPROXEN
  61. NITROGLYCERIN [Concomitant]
     Active Substance: NITROGLYCERIN
  62. NITROSTAT [Concomitant]
     Active Substance: NITROGLYCERIN
  63. OMEPRAZOLE [Concomitant]
     Active Substance: OMEPRAZOLE
  64. ONDANSETRON [Concomitant]
     Active Substance: ONDANSETRON
  65. OXYBUTYNIN [Concomitant]
     Active Substance: OXYBUTYNIN
  66. OXYCODONE [Concomitant]
     Active Substance: OXYCODONE
  67. PANTOPRAZOLE [Concomitant]
     Active Substance: PANTOPRAZOLE
  68. PHENAZOPYRIDINE [Concomitant]
     Active Substance: PHENAZOPYRIDINE
  69. PRAVASTATIN SODIUM [Concomitant]
     Active Substance: PRAVASTATIN SODIUM
  70. PREDNISONE [Concomitant]
     Active Substance: PREDNISONE
  71. PREZCOBIX [Concomitant]
     Active Substance: COBICISTAT\DARUNAVIR ETHANOLATE
  72. PROMETHAZINE [Concomitant]
     Active Substance: PROMETHAZINE HYDROCHLORIDE
  73. RANITIDINE [Concomitant]
     Active Substance: RANITIDINE
  74. RETIN-A [Concomitant]
     Active Substance: TRETINOIN
  75. ROSUVASTATIN [Concomitant]
     Active Substance: ROSUVASTATIN
  76. ROSUVASTATIN CALCIUM [Concomitant]
     Active Substance: ROSUVASTATIN CALCIUM
  77. SINGULAIR [Concomitant]
     Active Substance: MONTELUKAST SODIUM
  78. SULFAMETHOXAZOLE [Concomitant]
     Active Substance: SULFAMETHOXAZOLE
  79. TAMIFLU [Concomitant]
     Active Substance: OSELTAMIVIR PHOSPHATE
  80. TAMSULOSIN [Concomitant]
     Active Substance: TAMSULOSIN
  81. TOPROL XL [Concomitant]
     Active Substance: METOPROLOL SUCCINATE
  82. TRAMADOL [Concomitant]
     Active Substance: TRAMADOL
  83. TRETINOIN [Concomitant]
     Active Substance: TRETINOIN
  84. TRIAMCINOLONE [Concomitant]
     Active Substance: TRIAMCINOLONE
  85. URO-MP [Concomitant]
     Active Substance: HYOSCYAMINE SULFATE\METHENAMINE\METHYLENE BLUE\PHENYL SALICYLATE\SODIUM PHOSPHATE, MONOBASIC, MONOHY
  86. VALACYCLOVIR [Concomitant]
     Active Substance: VALACYCLOVIR HYDROCHLORIDE
  87. VANCOMYCIN [Concomitant]
     Active Substance: VANCOMYCIN
  88. VESICARE [Concomitant]
     Active Substance: SOLIFENACIN SUCCINATE
  89. ZYRTEC [Concomitant]
     Active Substance: CETIRIZINE HYDROCHLORIDE

REACTIONS (7)
  - Chronic kidney disease [Not Recovered/Not Resolved]
  - Pain [Not Recovered/Not Resolved]
  - Emotional distress [Not Recovered/Not Resolved]
  - Anxiety [Not Recovered/Not Resolved]
  - Anhedonia [Not Recovered/Not Resolved]
  - Renal impairment [Not Recovered/Not Resolved]
  - Blood creatinine increased [Unknown]

NARRATIVE: CASE EVENT DATE: 20140619
